FAERS Safety Report 9761587 (Version 1)
Quarter: 2013Q4

REPORT INFORMATION
  Report Type: Spontaneous
  Country: FR (occurrence: FR)
  Receive Date: 20131216
  Receipt Date: 20131216
  Transmission Date: 20140711
  Serious: Yes (Death)
  Sender: FDA-Public Use
  Company Number: FR-B.I. PHARMACEUTICALS,INC./RIDGEFIELD-2013-BI-42209FF

PATIENT
  Sex: Male

DRUGS (7)
  1. PRADAXA [Suspect]
     Indication: ATRIAL FIBRILLATION
     Dosage: 220 MG
     Route: 048
     Dates: start: 201212
  2. PRADAXA [Suspect]
     Indication: ARRHYTHMIA
  3. CARDENSIEL 10 MG [Concomitant]
  4. ATORVASTATINE 10 MG [Concomitant]
  5. COVERAM 10 MG/5 MG [Concomitant]
  6. MONICOR ER [Concomitant]
     Dosage: 60 MG
  7. DIFFU K [Concomitant]

REACTIONS (3)
  - Death [Fatal]
  - Rectal haemorrhage [Unknown]
  - Abdominal pain [Unknown]
